FAERS Safety Report 7359810-3 (Version None)
Quarter: 2011Q1

REPORT INFORMATION
  Report Type: 
  Country: None (occurrence: None)
  Receive Date: 20110317
  Receipt Date: 20110315
  Transmission Date: 20110831
  Serious: Yes (Other)
  Sender: FDA-Public Use
  Company Number: US-ABBOTT-11P-163-0703717-00

PATIENT
  Sex: Female

DRUGS (2)
  1. HUMIRA [Suspect]
     Indication: PSORIASIS
     Dates: start: 20090401, end: 20110101
  2. HUMIRA [Suspect]
     Dates: start: 20110201

REACTIONS (2)
  - PSORIASIS [None]
  - ABORTION SPONTANEOUS [None]
